FAERS Safety Report 6259857-4 (Version None)
Quarter: 2009Q3

REPORT INFORMATION
  Report Type: 
  Country: None (occurrence: None)
  Receive Date: 20090708
  Receipt Date: 20090622
  Transmission Date: 20100115
  Serious: Yes (Death)
  Sender: FDA-Public Use
  Company Number: GB-ROCHE-640545

PATIENT

DRUGS (8)
  1. MYCOPHENOLATE MOFETIL [Suspect]
     Indication: IMMUNOSUPPRESSION
     Route: 065
  2. INTERFERON ALFA-2B [Suspect]
     Indication: ANTIVIRAL TREATMENT
     Dosage: INTRO N A-ESSEX PHARMA
     Route: 065
  3. PEG-INTERFERON ALPHA 2B [Suspect]
     Indication: ANTIVIRAL TREATMENT
     Dosage: PEG-INTRON ESSEX PHARMA
     Route: 065
  4. RIBAVIRIN (NON-ROCHE) [Suspect]
     Indication: ANTIVIRAL TREATMENT
     Dosage: REBETOL: ESSEX PHARMA
     Route: 065
  5. G-CSF [Suspect]
     Dosage: CHUGAI PHARMA
     Route: 065
     Dates: start: 19980101
  6. EPOETIN [Suspect]
     Dosage: 3X10000 IE/WK, BIOTEST, GERMANY
     Route: 065
     Dates: start: 19980101
  7. CYCLOSPORINE [Suspect]
     Dosage: 50NG/ML
     Route: 065
  8. TACROLIMUS [Suspect]
     Dosage: 5NG/ML
     Route: 065

REACTIONS (2)
  - NEOPLASM MALIGNANT [None]
  - SEPSIS [None]
